FAERS Safety Report 5442521-9 (Version None)
Quarter: 2007Q3

REPORT INFORMATION
  Report Type: 
  Country: None (occurrence: None)
  Receive Date: 20070830
  Receipt Date: 20070820
  Transmission Date: 20080115
  Serious: Yes (Other)
  Sender: FDA-Public Use
  Company Number: SPI200600015

PATIENT
  Age: 41 Year
  Sex: Female
  Weight: 75.7 kg

DRUGS (9)
  1. AMITIZA [Suspect]
     Indication: CONSTIPATION
     Dosage: 24 MCG, BID, ORAL
     Route: 048
     Dates: start: 20060503, end: 20060503
  2. ESTRATEST (METHYLTESTOSTEONE, ESTROGENS ESTERIFIED) [Concomitant]
  3. TOPROL-XL [Concomitant]
  4. PREVACID [Concomitant]
  5. ZOFRAN [Concomitant]
  6. BUMEX [Concomitant]
  7. XIFAXAN (RIFAXIMIN) [Concomitant]
  8. ZELNORM [Concomitant]
  9. CYMBALTA [Concomitant]

REACTIONS (13)
  - ANAPHYLACTIC SHOCK [None]
  - ASTHENIA [None]
  - CHEST DISCOMFORT [None]
  - DEHYDRATION [None]
  - DIZZINESS [None]
  - DYSPNOEA [None]
  - ELECTROCARDIOGRAM CHANGE [None]
  - HYPERSENSITIVITY [None]
  - LIP SWELLING [None]
  - LOSS OF CONSCIOUSNESS [None]
  - PALPITATIONS [None]
  - PHARYNGEAL OEDEMA [None]
  - URTICARIA [None]
